FAERS Safety Report 21064535 (Version 1)
Quarter: 2022Q3

REPORT INFORMATION
  Report Type: Spontaneous
  Country: US (occurrence: US)
  Receive Date: 20220711
  Receipt Date: 20220711
  Transmission Date: 20221027
  Serious: No
  Sender: FDA-Public Use
  Company Number: US-FERRINGPH-2021FE05257

PATIENT
  Age: 12 Year
  Sex: Male
  Weight: 34.014 kg

DRUGS (1)
  1. ZOMACTON [Suspect]
     Active Substance: SOMATROPIN
     Indication: Small for dates baby
     Dosage: UNK
     Route: 065
     Dates: start: 202010, end: 2021

REACTIONS (7)
  - Drug effective for unapproved indication [Unknown]
  - Off label use [Not Recovered/Not Resolved]
  - Product use in unapproved indication [Not Recovered/Not Resolved]
  - Product availability issue [Not Recovered/Not Resolved]
  - Product odour abnormal [Unknown]
  - Product reconstitution quality issue [Unknown]
  - Poor quality product administered [Unknown]

NARRATIVE: CASE EVENT DATE: 20201001
